FAERS Safety Report 6436916-4 (Version None)
Quarter: 2009Q4

REPORT INFORMATION
  Report Type: 
  Country: None (occurrence: None)
  Receive Date: 20091111
  Receipt Date: 20091029
  Transmission Date: 20100525
  Serious: Yes (Hospitalization)
  Sender: FDA-Public Use
  Company Number: PHHY2009JP45061

PATIENT
  Sex: Female

DRUGS (7)
  1. TEGRETOL [Suspect]
     Indication: FACIAL SPASM
     Dosage: 200 MG DAILY
     Route: 048
     Dates: start: 20090701, end: 20091009
  2. LOSARTAN POTASSIUM AND HYDROCHLOROTHIAZIDE [Concomitant]
     Dosage: UNK
     Route: 048
  3. DEPAS [Concomitant]
     Dosage: 1 MG
     Route: 048
     Dates: start: 20091009
  4. MEILAX [Concomitant]
     Dosage: UNK
     Route: 048
  5. NORVASC [Concomitant]
     Dosage: 5 MG
     Route: 048
     Dates: start: 20091014
  6. OLMETEC [Concomitant]
     Dosage: 20 MG
     Route: 048
     Dates: start: 20091009
  7. ADALAT [Concomitant]
     Route: 048

REACTIONS (11)
  - BLOOD CHLORIDE DECREASED [None]
  - BLOOD SODIUM DECREASED [None]
  - BRADYCARDIA [None]
  - DECREASED APPETITE [None]
  - HEAD DISCOMFORT [None]
  - HYPONATRAEMIA [None]
  - INAPPROPRIATE ANTIDIURETIC HORMONE SECRETION [None]
  - MALAISE [None]
  - PALPITATIONS [None]
  - PERIPHERAL COLDNESS [None]
  - SINUS ARRHYTHMIA [None]
